FAERS Safety Report 18830268 (Version 1)
Quarter: 2021Q1

REPORT INFORMATION
  Report Type: Spontaneous
  Country: US (occurrence: US)
  Receive Date: 20210202
  Receipt Date: 20210202
  Transmission Date: 20210419
  Serious: Yes (Other)
  Sender: FDA-Public Use
  Company Number: None

PATIENT
  Age: 59 Year
  Sex: Female
  Weight: 120.5 kg

DRUGS (1)
  1. BAMLANIVIMAB. [Suspect]
     Active Substance: BAMLANIVIMAB
     Indication: COVID-19
     Dosage: ?          OTHER FREQUENCY:ONE TIME;?
     Route: 042
     Dates: start: 20210115

REACTIONS (5)
  - Pulmonary congestion [None]
  - Cardiomegaly [None]
  - Oxygen saturation decreased [None]
  - Bronchial wall thickening [None]
  - Cardiac failure congestive [None]

NARRATIVE: CASE EVENT DATE: 20210125
